FAERS Safety Report 18268349 (Version 1)
Quarter: 2020Q3

REPORT INFORMATION
  Report Type: Other
  Country: DE (occurrence: DE)
  Receive Date: 20200915
  Receipt Date: 20200915
  Transmission Date: 20201103
  Serious: Yes (Hospitalization)
  Sender: FDA-Public Use
  Company Number: DE-MACLEODS PHARMACEUTICALS US LTD-MAC2020027975

PATIENT

DRUGS (24)
  1. TORASEMID [Concomitant]
     Active Substance: TORSEMIDE
     Indication: PRODUCT USED FOR UNKNOWN INDICATION
     Dosage: UNK, LONG?TERM MEDICATION
     Route: 065
  2. GABAPENTIN. [Concomitant]
     Active Substance: GABAPENTIN
     Indication: PRODUCT USED FOR UNKNOWN INDICATION
     Dosage: 600 MILLIGRAM, QD
     Route: 065
     Dates: start: 20200615, end: 20200619
  3. AMLODIPIN [Concomitant]
     Active Substance: AMLODIPINE BESYLATE
     Indication: HYPERTENSION
     Dosage: 5 MILLIGRAM, BID, LONG?TERM MEDICATION
     Route: 048
     Dates: start: 20200825
  4. APIXABAN [Concomitant]
     Active Substance: APIXABAN
     Dosage: DRUG STARTED ON 20 AUG 2020, 2.5 MILLIGRAM, BID, 2.5?0?2.5
     Route: 065
  5. SIMVASTATIN. [Concomitant]
     Active Substance: SIMVASTATIN
     Indication: PRODUCT USED FOR UNKNOWN INDICATION
     Dosage: 10 MILLIGRAM, QD, 0?0?1
     Route: 048
  6. GABAPENTIN. [Concomitant]
     Active Substance: GABAPENTIN
     Dosage: DRUG STARTED ON 26 JUN 2020, 200 MILLIGRAM, QD
     Route: 065
  7. LACTULOSE. [Concomitant]
     Active Substance: LACTULOSE
     Indication: CONSTIPATION
     Dosage: 10 MILLILITER, TID, 3X10 ML FOR 2 YEARS
     Route: 065
     Dates: start: 2018
  8. TAVOR [Concomitant]
     Indication: SLEEP DISORDER
     Dosage: UNK, PRN, AS NECESSARY
     Route: 065
  9. PANTOPRAZOLE [Suspect]
     Active Substance: PANTOPRAZOLE
     Dosage: DRUG STOPPED ON 06 JUNE 2020, 20 MILLIGRAM, IN BETWEEN THE DOSE WAS REDUCED TO 20 MG
     Route: 065
  10. LORAZEPAM. [Concomitant]
     Active Substance: LORAZEPAM
     Indication: SLEEP DISORDER
     Dosage: UNK UNK, PRN, AS NECESSARY
     Route: 065
  11. PIPAMPERON [Concomitant]
     Active Substance: PIPAMPERONE HYDROCHLORIDE
     Indication: PRODUCT USED FOR UNKNOWN INDICATION
     Dosage: UNK
     Route: 065
  12. PANTOPRAZOLE [Suspect]
     Active Substance: PANTOPRAZOLE
     Indication: GASTRITIS
     Dosage: 40 MILLIGRAM, BID, 1?0?1
     Route: 048
     Dates: start: 201807
  13. ESOMEPRAZOLE. [Suspect]
     Active Substance: ESOMEPRAZOLE MAGNESIUM
     Indication: GASTRITIS
     Dosage: 20 MILLIGRAM, BID,1?0?1
     Route: 048
     Dates: start: 20200607, end: 20200824
  14. LANTUS [Concomitant]
     Active Substance: INSULIN GLARGINE
     Indication: PRODUCT USED FOR UNKNOWN INDICATION
     Dosage: 8 INTERNATIONAL UNIT, QD, 1?0?0 TAKING REGULARLY IN THE MORNING SINCE 2018/2019
     Route: 065
     Dates: start: 2018
  15. TELMISARTAN. [Concomitant]
     Active Substance: TELMISARTAN
     Indication: HYPERTENSION
     Dosage: 40 MILLIGRAM, BID, LONG?TERM MEDICATION
     Route: 048
  16. APIXABAN [Concomitant]
     Active Substance: APIXABAN
     Indication: PRODUCT USED FOR UNKNOWN INDICATION
     Dosage: 5 MILLIGRAM, BID
     Route: 065
  17. HCT [Concomitant]
     Active Substance: HYDROCHLOROTHIAZIDE
     Indication: OLIGURIA
     Dosage: 12.5 MILLIGRAM, QD, 12.5?0?0
     Route: 065
  18. RISPERIDON [Concomitant]
     Active Substance: RISPERIDONE
     Indication: PRODUCT USED FOR UNKNOWN INDICATION
     Dosage: UNK
     Route: 065
  19. BISOPROLOL [Concomitant]
     Active Substance: BISOPROLOL
     Indication: HYPERTENSION
     Dosage: 5 MILLIGRAM, BID, IF REQUIRED, ONLY 2.5 MG IN THE EVENING
     Route: 048
  20. L?THYROXIN 50 MICROGRAM [Concomitant]
     Indication: HYPERTHYROIDISM
     Dosage: 50 MICROGRAM, QD, 1?0?0
     Route: 065
     Dates: start: 2007
  21. RAMIPRIL. [Suspect]
     Active Substance: RAMIPRIL
     Indication: PRODUCT USED FOR UNKNOWN INDICATION
     Dosage: UNK
     Route: 065
  22. VOMEX [Concomitant]
     Active Substance: DIMENHYDRINATE
     Indication: NAUSEA
     Dosage: UNK
     Route: 065
  23. MIRTAZAPIN [Concomitant]
     Active Substance: MIRTAZAPINE
     Indication: PRODUCT USED FOR UNKNOWN INDICATION
     Dosage: 15 MILLIGRAM
     Route: 065
  24. ASPIRIN. [Concomitant]
     Active Substance: ASPIRIN
     Indication: ARTERIOSCLEROSIS
     Dosage: 1 DOSAGE FORM, QD
     Route: 048
     Dates: end: 20200114

REACTIONS (7)
  - Adverse reaction [Unknown]
  - Restlessness [Unknown]
  - Nausea [Unknown]
  - Cough [Unknown]
  - Anxiety [Unknown]
  - Sleep disorder [Unknown]
  - Headache [Unknown]

NARRATIVE: CASE EVENT DATE: 201807
